FAERS Safety Report 15180223 (Version 1)
Quarter: 2018Q3

REPORT INFORMATION
  Report Type: Spontaneous
  Country: IT (occurrence: IT)
  Receive Date: 20180723
  Receipt Date: 20180723
  Transmission Date: 20181010
  Serious: Yes (Other)
  Sender: FDA-Public Use
  Company Number: IT-ACCORD-069827

PATIENT
  Age: 74 Year
  Sex: Female

DRUGS (1)
  1. CISPLATIN. [Suspect]
     Active Substance: CISPLATIN
     Indication: SQUAMOUS CELL CARCINOMA
     Dosage: 40 MG/M2

REACTIONS (5)
  - Stomatitis [Recovered/Resolved]
  - Dehydration [Unknown]
  - Weight decreased [Unknown]
  - Candida infection [Unknown]
  - Pain [Recovering/Resolving]
